FAERS Safety Report 5594799-9 (Version None)
Quarter: 2008Q1

REPORT INFORMATION
  Report Type: 
  Country: None (occurrence: None)
  Receive Date: 20080117
  Receipt Date: 20080111
  Transmission Date: 20080703
  Serious: Yes (Other)
  Sender: FDA-Public Use
  Company Number: B0500889A

PATIENT
  Age: 57 Year
  Sex: Male

DRUGS (1)
  1. RANIPLEX [Suspect]
     Dosage: 300MG PER DAY
     Route: 048
     Dates: start: 20060301, end: 20060401

REACTIONS (1)
  - ANAEMIA HAEMOLYTIC AUTOIMMUNE [None]
